FAERS Safety Report 19121020 (Version 1)
Quarter: 2021Q2

REPORT INFORMATION
  Report Type: Spontaneous
  Country: US (occurrence: US)
  Receive Date: 20210412
  Receipt Date: 20210412
  Transmission Date: 20210717
  Serious: Yes (Other)
  Sender: FDA-Public Use
  Company Number: None

PATIENT
  Age: 42 Year
  Sex: Female
  Weight: 55.5 kg

DRUGS (2)
  1. DOXORUBICIN [Suspect]
     Active Substance: DOXORUBICIN
     Indication: BREAST CANCER
     Dosage: ?          OTHER FREQUENCY:EVERY 14 DAYS;?
     Route: 040
     Dates: start: 20210212, end: 20210212
  2. CYCLOPHOSPHAMIDE 888 MG IN SODIUM CHLORIDE 0.9% 455.6 ML [Concomitant]
     Dates: start: 20210212, end: 20210212

REACTIONS (2)
  - Dyspnoea [None]
  - Throat irritation [None]

NARRATIVE: CASE EVENT DATE: 20210212
